FAERS Safety Report 6574745-1 (Version None)
Quarter: 2010Q1

REPORT INFORMATION
  Report Type: 
  Country: None (occurrence: None)
  Receive Date: 20100209
  Receipt Date: 20100128
  Transmission Date: 20100710
  Serious: Yes (Other)
  Sender: FDA-Public Use
  Company Number: PHHY2009DE51581

PATIENT
  Sex: Male
  Weight: 95 kg

DRUGS (1)
  1. EXELON [Suspect]
     Indication: DEMENTIA
     Route: 062

REACTIONS (2)
  - ARRHYTHMIA [None]
  - VENTRICULAR EXTRASYSTOLES [None]
